FAERS Safety Report 19845166 (Version 1)
Quarter: 2021Q3

REPORT INFORMATION
  Report Type: Spontaneous
  Country: PL (occurrence: PL)
  Receive Date: 20210917
  Receipt Date: 20210917
  Transmission Date: 20211014
  Serious: Yes (Death, Other)
  Sender: FDA-Public Use
  Company Number: PL-B.I. PHARMACEUTICALS,INC./RIDGEFIELD-2021-BI-126860

PATIENT
  Age: 86 Year
  Sex: Male
  Weight: 62 kg

DRUGS (8)
  1. BISEPTOL [Concomitant]
     Active Substance: SULFAMETHOXAZOLE\TRIMETHOPRIM
     Indication: URINARY TRACT INFECTION
     Dosage: DOSE: 1?0?1
     Route: 048
     Dates: start: 20210805, end: 20210812
  2. JARDIANCE [Suspect]
     Active Substance: EMPAGLIFLOZIN
     Indication: TYPE 2 DIABETES MELLITUS
     Dosage: DOSE: 10 MG 0?1?0. DRUG STARTED BEFORE HOSPITALISATION.
     Route: 048
     Dates: end: 20210811
  3. ACARD [ACETYLSALICYLIC ACID] [Concomitant]
     Active Substance: ASPIRIN
     Indication: PRODUCT USED FOR UNKNOWN INDICATION
     Dosage: DOSE: 1?0?0
     Route: 048
     Dates: end: 20210812
  4. ZENMEM [Concomitant]
     Indication: PRODUCT USED FOR UNKNOWN INDICATION
     Dosage: DOSE: 1?0?0
     Route: 048
     Dates: end: 20210811
  5. GLIBETIC [GLIBENCLAMIDE] [Concomitant]
     Active Substance: GLYBURIDE
     Indication: TYPE 2 DIABETES MELLITUS
     Dosage: DOSE: 1?0,5 TABLET?0
     Route: 048
     Dates: end: 20210811
  6. RIVASTIGMINE. [Concomitant]
     Active Substance: RIVASTIGMINE
     Indication: PRODUCT USED FOR UNKNOWN INDICATION
     Dosage: DOSE: 1?0?1
     Route: 048
     Dates: end: 20210811
  7. NEBILET [Concomitant]
     Active Substance: NEBIVOLOL
     Indication: PRODUCT USED FOR UNKNOWN INDICATION
     Dosage: DOSE: 0,5 TABLET?0?0
     Route: 048
     Dates: end: 20210812
  8. IPP [OMEPRAZOLE] [Concomitant]
     Active Substance: OMEPRAZOLE
     Indication: PRODUCT USED FOR UNKNOWN INDICATION
     Dosage: DOSE: 1?0?0
     Route: 048
     Dates: start: 20210803, end: 20210812

REACTIONS (2)
  - Cardiac arrest [Fatal]
  - Metabolic acidosis [Fatal]

NARRATIVE: CASE EVENT DATE: 20210811
